FAERS Safety Report 9490516 (Version 1)
Quarter: 2013Q3

REPORT INFORMATION
  Report Type: Spontaneous
  Country: US (occurrence: None)
  Receive Date: 20130827
  Receipt Date: 20130827
  Transmission Date: 20140515
  Serious: No
  Sender: FDA-Public Use
  Company Number: None

PATIENT
  Age: 78 None
  Sex: Female

DRUGS (6)
  1. FAMCICLOVIR [Suspect]
     Indication: HERPES ZOSTER
     Route: 048
     Dates: start: 20130813, end: 20130813
  2. VITAMINS C [Concomitant]
  3. VITAMIN D [Concomitant]
  4. VITAMIN E [Concomitant]
  5. LUTEIN [Concomitant]
  6. CALCIUM [Concomitant]

REACTIONS (7)
  - Headache [None]
  - Abdominal discomfort [None]
  - Diarrhoea [None]
  - Nasal congestion [None]
  - Rhinorrhoea [None]
  - Feeling of body temperature change [None]
  - Dyspnoea [None]
